FAERS Safety Report 9116192 (Version 2)
Quarter: 2013Q2

REPORT INFORMATION
  Report Type: Spontaneous
  Country: US (occurrence: US)
  Receive Date: 20130225
  Receipt Date: 20130513
  Transmission Date: 20140414
  Serious: Yes (Hospitalization)
  Sender: FDA-Public Use
  Company Number: US-PFIZER INC-2013065289

PATIENT
  Age: 36 Year
  Sex: Male

DRUGS (2)
  1. ZITHROMAX [Suspect]
     Indication: CHLAMYDIAL INFECTION
     Dosage: 1 G, SINGLE
     Route: 048
     Dates: start: 20130201, end: 20130201
  2. IMIQUIMOD [Concomitant]
     Dosage: 5 %, 1X/DAY
     Route: 061

REACTIONS (5)
  - Pain in extremity [Unknown]
  - Hyperaesthesia [Unknown]
  - Arthritis reactive [Unknown]
  - Myalgia [Unknown]
  - Asthenia [Unknown]
